FAERS Safety Report 16441364 (Version 1)
Quarter: 2019Q3

REPORT INFORMATION
  Report Type: Spontaneous
  Country: US (occurrence: US)
  Receive Date: 20190617
  Receipt Date: 20190617
  Transmission Date: 20191004
  Serious: Yes (Life-Threatening, Other)
  Sender: FDA-Public Use
  Company Number: None

PATIENT
  Age: 47 Year
  Sex: Female
  Weight: 88.2 kg

DRUGS (11)
  1. XOLAIR [Suspect]
     Active Substance: OMALIZUMAB
     Indication: IDIOPATHIC URTICARIA
     Dosage: ?          OTHER FREQUENCY:MONTH;?
     Route: 058
     Dates: start: 20190614, end: 20190614
  2. FAMOTIDINE. [Concomitant]
     Active Substance: FAMOTIDINE
     Dates: start: 20190509
  3. EPI-PEN 2 PACK [Concomitant]
     Dates: start: 20190509
  4. BUDESONIDE NASAL SPRAY [Concomitant]
     Active Substance: BUDESONIDE
     Dates: start: 20190509
  5. HYDROXYZINE [Concomitant]
     Active Substance: HYDROXYZINE HYDROCHLORIDE
     Dates: start: 20190509
  6. PROAIR HFA [Concomitant]
     Active Substance: ALBUTEROL SULFATE
     Dates: start: 20190509
  7. IBUPROFEN. [Concomitant]
     Active Substance: IBUPROFEN
     Dates: start: 20190509
  8. BENADRYL [Concomitant]
     Active Substance: DIPHENHYDRAMINE HYDROCHLORIDE
     Dates: start: 20190509
  9. MONTELUKAST SODIUM. [Concomitant]
     Active Substance: MONTELUKAST SODIUM
     Dates: start: 20190509
  10. LEVOCETIRIZINE [Concomitant]
     Active Substance: LEVOCETIRIZINE
     Dates: start: 20190509
  11. ALBUTEROL SULFATE VIA NEBULIZER MACHINE [Concomitant]
     Dates: start: 20190509

REACTIONS (3)
  - Urticaria [None]
  - Pruritus [None]
  - Wheezing [None]

NARRATIVE: CASE EVENT DATE: 20190614
